FAERS Safety Report 18620552 (Version 1)
Quarter: 2020Q4

REPORT INFORMATION
  Report Type: Spontaneous
  Country: US (occurrence: US)
  Receive Date: 20201215
  Receipt Date: 20201215
  Transmission Date: 20210114
  Serious: No
  Sender: FDA-Public Use
  Company Number: US-TAKEDA-2020TUS055815

PATIENT

DRUGS (1)
  1. VPRIV [Suspect]
     Active Substance: VELAGLUCERASE ALFA
     Indication: PRODUCT USED FOR UNKNOWN INDICATION
     Route: 065

REACTIONS (2)
  - No adverse event [Unknown]
  - Wrong technique in product usage process [Unknown]
